FAERS Safety Report 9310913 (Version 7)
Quarter: 2014Q2

REPORT INFORMATION
  Report Type: Spontaneous
  Country: NL (occurrence: NL)
  Receive Date: 20130528
  Receipt Date: 20140530
  Transmission Date: 20141212
  Serious: Yes (Disabling)
  Sender: FDA-Public Use
  Company Number: NL-009507513-1305NLD013417

PATIENT
  Age: 72 Year
  Sex: Male

DRUGS (3)
  1. SINEMET CR 250 [Suspect]
     Dosage: 200 MG LEVODOPA/ 50 MG CARBIDOPA IN THE EVENING
     Route: 048
     Dates: start: 2013
  2. SINEMET-125 [Suspect]
     Dosage: 1200 MG LEVODOPA/ 300 MG CARBIDOPA, 4X3 TAB
     Route: 048
     Dates: start: 201301
  3. SINEMET [Suspect]
     Indication: PARKINSON^S DISEASE
     Dosage: STRENGTH UNSPECIFIED, DOSE 4 DD 2
     Route: 048
     Dates: start: 200909, end: 201305

REACTIONS (4)
  - Dysphemia [Unknown]
  - Fall [Unknown]
  - Gait disturbance [Unknown]
  - Drug ineffective [Unknown]
